FAERS Safety Report 4698161-2 (Version None)
Quarter: 2005Q2

REPORT INFORMATION
  Report Type: 
  Country: None (occurrence: None)
  Receive Date: 20050623
  Receipt Date: 20041203
  Transmission Date: 20051028
  Serious: Yes (Other)
  Sender: FDA-Public Use
  Company Number: GB-GLAXOSMITHKLINE-B0359737A

PATIENT
  Sex: Male

DRUGS (1)
  1. SEROXAT [Suspect]
     Route: 065
     Dates: start: 19980201, end: 20020601

REACTIONS (10)
  - AGGRESSION [None]
  - ALCOHOL USE [None]
  - CHLAMYDIAL INFECTION [None]
  - DRUG WITHDRAWAL SYNDROME [None]
  - MARITAL PROBLEM [None]
  - MOOD SWINGS [None]
  - NIGHTMARE [None]
  - PAIN [None]
  - PERSONALITY CHANGE [None]
  - SEXUAL DYSFUNCTION [None]
